FAERS Safety Report 5115689-1 (Version None)
Quarter: 2006Q3

REPORT INFORMATION
  Report Type: 
  Country: None (occurrence: None)
  Receive Date: 20060926
  Receipt Date: 20060926
  Transmission Date: 20061208
  Serious: Yes (Other)
  Sender: FDA-Public Use
  Company Number: None

PATIENT
  Age: 81 Year
  Sex: Male
  Weight: 53.2 kg

DRUGS (22)
  1. HYTRIN [Suspect]
  2. TAMSULOSIN HCL [Concomitant]
  3. OMEPRAZOLE [Concomitant]
  4. ACETAMINOPHEN [Concomitant]
  5. METFORMIN HCL [Concomitant]
  6. LACTASE ENZYME [Concomitant]
  7. ISOSORBIDE DINITRATE [Concomitant]
  8. IPRATROPIUM BROMIDE [Concomitant]
  9. HYPROMELLOSE [Concomitant]
  10. GLIPIZIDE [Concomitant]
  11. FINASTERIDE [Concomitant]
  12. DOCUSATE/SENNOSIDES [Concomitant]
  13. ALBUTEROL [Concomitant]
  14. NITROGLYCERIN [Concomitant]
  15. MILK OF MAGNESIA TAB [Concomitant]
  16. CIPROFLOXACIN [Concomitant]
  17. HUMULIN N [Concomitant]
  18. PROMETHAZINE [Concomitant]
  19. ENOXAPARIN SODIUM [Concomitant]
  20. CETYLPYRIDINIUM CHLORIDE [Concomitant]
  21. INSULIN REG HUMAN NOVOLIN R [Concomitant]
  22. CEFEPIME [Concomitant]

REACTIONS (1)
  - HYPOTENSION [None]
